FAERS Safety Report 8127326-2 (Version None)
Quarter: 2012Q1

REPORT INFORMATION
  Report Type: 
  Country: None (occurrence: None)
  Receive Date: 20120210
  Receipt Date: 20120203
  Transmission Date: 20120608
  Serious: Yes (Hospitalization, Other)
  Sender: FDA-Public Use
  Company Number: US-BAYER-2011-011236

PATIENT
  Age: 18 Year
  Sex: Female
  Weight: 111 kg

DRUGS (7)
  1. YASMIN [Suspect]
     Indication: POLYCYSTIC OVARIES
     Dosage: UNK
     Route: 048
     Dates: start: 20060701, end: 20061201
  2. YAZ [Suspect]
     Indication: PREMENSTRUAL SYNDROME
  3. METFORMIN HCL [Concomitant]
     Indication: POLYCYSTIC OVARIES
     Dosage: UNK
     Route: 048
     Dates: start: 20050101, end: 20070101
  4. YAZ [Suspect]
     Indication: POLYCYSTIC OVARIES
     Dosage: UNK
     Dates: start: 20081001
  5. IBUPROFEN [Concomitant]
     Indication: HEADACHE
     Dosage: UNK UNK, PRN
     Route: 048
  6. ACETAMINOPHEN [Concomitant]
     Indication: HEADACHE
     Dosage: UNK UNK, PRN
     Route: 048
  7. YASMIN [Suspect]
     Indication: PREMENSTRUAL SYNDROME

REACTIONS (11)
  - DEPRESSION [None]
  - DIARRHOEA [None]
  - CONSTIPATION [None]
  - FLATULENCE [None]
  - PAIN [None]
  - SCAR [None]
  - ABDOMINAL DISTENSION [None]
  - DYSPEPSIA [None]
  - CHOLELITHIASIS [None]
  - BILIARY COLIC [None]
  - ANXIETY [None]
